FAERS Safety Report 24308972 (Version 1)
Quarter: 2024Q3

REPORT INFORMATION
  Report Type: Spontaneous
  Country: CO (occurrence: CO)
  Receive Date: 20240911
  Receipt Date: 20240911
  Transmission Date: 20241016
  Serious: Yes (Hospitalization)
  Sender: BOEHRINGER INGELHEIM
  Company Number: CO-BoehringerIngelheim-2024-BI-050626

PATIENT
  Age: 81 Year
  Sex: Male

DRUGS (1)
  1. OFEV [Suspect]
     Active Substance: NINTEDANIB
     Indication: Pulmonary fibrosis
     Dates: start: 202311

REACTIONS (2)
  - Unresponsive to stimuli [Recovering/Resolving]
  - Terminal state [Unknown]

NARRATIVE: CASE EVENT DATE: 20240719
